FAERS Safety Report 6348346-4 (Version None)
Quarter: 2009Q3

REPORT INFORMATION
  Report Type: 
  Country: None (occurrence: None)
  Receive Date: 20090908
  Receipt Date: 20090821
  Transmission Date: 20100115
  Serious: Yes (Other)
  Sender: FDA-Public Use
  Company Number: ALL1-2009-02430

PATIENT
  Sex: Female

DRUGS (1)
  1. FOSRENOL [Suspect]
     Indication: DRUG USE FOR UNKNOWN INDICATION
     Dosage: MG, ORAL
     Route: 048

REACTIONS (3)
  - DRUG ADMINISTRATION ERROR [None]
  - FOREIGN BODY TRAUMA [None]
  - WRONG TECHNIQUE IN DRUG USAGE PROCESS [None]
